FAERS Safety Report 6770061-3 (Version None)
Quarter: 2010Q2

REPORT INFORMATION
  Report Type: 
  Country: None (occurrence: None)
  Receive Date: 20100615
  Receipt Date: 20100608
  Transmission Date: 20101027
  Serious: Yes (Disabling)
  Sender: FDA-Public Use
  Company Number: GXKR2010GB06330

PATIENT
  Age: 65 Year
  Sex: Male
  Weight: 90.4 kg

DRUGS (9)
  1. ATORVASTATIN (NGX) [Interacting]
     Route: 065
  2. LANSOPRAZOLE [Suspect]
     Indication: DYSPEPSIA
     Route: 065
  3. AMITRIPTYLINE [Interacting]
     Indication: DEPRESSION
     Dosage: 25 MG, UNK
  4. AMITRIPTYLINE [Interacting]
     Indication: PAIN
  5. AMITRIPTYLINE [Interacting]
     Indication: SLEEP DISORDER
  6. BUPRENORPHINE [Interacting]
     Indication: BACK PAIN
     Dosage: 25 UG, QH
     Dates: start: 20090501
  7. ROTIGOTINE [Interacting]
     Indication: PARKINSON'S DISEASE
     Dosage: 4 MG, UNK
     Route: 003
     Dates: start: 20090801
  8. SELEGILINE HCL [Interacting]
     Indication: PARKINSON'S DISEASE
     Dosage: 0.05 MG, UNK
     Route: 048
     Dates: start: 20100120, end: 20100123
  9. SINEMET [Interacting]
     Indication: PARKINSON'S DISEASE
     Dosage: 1 DF, 9QD
     Route: 048
     Dates: start: 20090801

REACTIONS (4)
  - DIPLOPIA [None]
  - DRUG INTERACTION [None]
  - DYSARTHRIA [None]
  - NAUSEA [None]
